FAERS Safety Report 13832418 (Version 1)
Quarter: 2017Q3

REPORT INFORMATION
  Report Type: Spontaneous
  Country: US (occurrence: US)
  Receive Date: 20170803
  Receipt Date: 20170803
  Transmission Date: 20171127
  Serious: No
  Sender: FDA-Public Use
  Company Number: US-ROCHE-670736

PATIENT
  Sex: Female
  Weight: 67.6 kg

DRUGS (1)
  1. BONIVA [Suspect]
     Active Substance: IBANDRONATE SODIUM
     Indication: OSTEOPOROSIS
     Route: 048
     Dates: start: 20080714, end: 200905

REACTIONS (3)
  - Mucous membrane disorder [Recovering/Resolving]
  - Epistaxis [Recovering/Resolving]
  - Nasal discomfort [Recovering/Resolving]
